FAERS Safety Report 16816128 (Version 1)
Quarter: 2019Q3

REPORT INFORMATION
  Report Type: Spontaneous
  Country: NL (occurrence: NL)
  Receive Date: 20190917
  Receipt Date: 20190917
  Transmission Date: 20191005
  Serious: Yes (Hospitalization)
  Sender: FDA-Public Use
  Company Number: PHHY2019NL211567

PATIENT
  Age: 5 Year
  Sex: Male
  Weight: 34 kg

DRUGS (1)
  1. AMITRIPTYLINE [Suspect]
     Active Substance: AMITRIPTYLINE
     Indication: CYCLIC VOMITING SYNDROME
     Dosage: 10 MG, QD (1 DD 10 MG AN)
     Route: 065
     Dates: start: 20190628, end: 20190816

REACTIONS (1)
  - Idiopathic intracranial hypertension [Recovering/Resolving]

NARRATIVE: CASE EVENT DATE: 20190807
